FAERS Safety Report 18197929 (Version 1)
Quarter: 2020Q3

REPORT INFORMATION
  Report Type: Spontaneous
  Country: US (occurrence: US)
  Receive Date: 20200826
  Receipt Date: 20200826
  Transmission Date: 20201103
  Serious: Yes (Death, Other)
  Sender: FDA-Public Use
  Company Number: US-PFIZER INC-2020328019

PATIENT
  Age: 65 Year
  Sex: Male
  Weight: 53.02 kg

DRUGS (6)
  1. AMOXICILLIN CLAVULANIC ACID [Suspect]
     Active Substance: AMOXICILLIN\CLAVULANIC ACID
     Indication: TUBERCULOSIS
     Dosage: UNK
  2. LINEZOLID. [Suspect]
     Active Substance: LINEZOLID
     Indication: TUBERCULOSIS
     Dosage: 300, QD (ONCE A DAY)
     Route: 048
     Dates: start: 20190502, end: 20200621
  3. BEDAQUILINE [Suspect]
     Active Substance: BEDAQUILINE
     Indication: TUBERCULOSIS
     Dosage: 200, QD (ONCE A DAY)
     Route: 048
     Dates: start: 20190502, end: 20200621
  4. CLOFAZIMINE [Suspect]
     Active Substance: CLOFAZIMINE
     Indication: TUBERCULOSIS
     Dosage: 100, QD (ONCE A DAY)
     Route: 048
     Dates: start: 20190502, end: 20200621
  5. DELAMANID [Suspect]
     Active Substance: DELAMANID
     Indication: TUBERCULOSIS
     Dosage: 200, QD (ONCE A DAY)
     Route: 048
     Dates: start: 20190502, end: 20200621
  6. IMIPENEM AND CILASTATIN [Suspect]
     Active Substance: CILASTATIN SODIUM\IMIPENEM
     Indication: TUBERCULOSIS
     Dosage: UNK

REACTIONS (6)
  - Off label use [Unknown]
  - Incorrect product administration duration [Unknown]
  - Alcohol abuse [Unknown]
  - Alcohol poisoning [Unknown]
  - Carbon monoxide poisoning [Fatal]
  - Product use in unapproved indication [Unknown]

NARRATIVE: CASE EVENT DATE: 20200430
